FAERS Safety Report 6296145-4 (Version None)
Quarter: 2009Q3

REPORT INFORMATION
  Report Type: 
  Country: None (occurrence: None)
  Receive Date: 20090804
  Receipt Date: 20090727
  Transmission Date: 20100115
  Serious: Yes (Other)
  Sender: FDA-Public Use
  Company Number: CL-ASTRAZENECA-2009UW21333

PATIENT
  Age: 4913 Day
  Sex: Female
  Weight: 59 kg

DRUGS (2)
  1. SYMBICORT [Suspect]
     Indication: ASTHMA
     Dosage: 160/4.5 UG, 2 PUFFS
     Route: 055
     Dates: start: 20090324, end: 20090525
  2. SALBUTAMOL [Concomitant]
     Indication: OBSTRUCTION
     Dates: start: 20081017

REACTIONS (1)
  - CUSHING'S SYNDROME [None]
